FAERS Safety Report 10204043 (Version 4)
Quarter: 2014Q2

REPORT INFORMATION
  Report Type: Spontaneous
  Country: JP (occurrence: JP)
  Receive Date: 20140529
  Receipt Date: 20140609
  Transmission Date: 20141212
  Serious: Yes (Life-Threatening, Hospitalization)
  Sender: FDA-Public Use
  Company Number: JP-ELI_LILLY_AND_COMPANY-JP201405004098

PATIENT
  Age: 70 Year
  Sex: Female
  Weight: 47.3 kg

DRUGS (7)
  1. CYMBALTA [Suspect]
     Indication: DEPRESSION
     Dosage: 20 MG, EACH EVENING
     Route: 048
     Dates: start: 20140403, end: 20140416
  2. CYMBALTA [Suspect]
     Indication: INSOMNIA
     Dosage: 40 MG, EACH EVENING
     Route: 048
     Dates: start: 20140417, end: 20140424
  3. MYSLEE [Concomitant]
     Indication: INSOMNIA
     Dosage: 10 MG, QD
     Route: 048
     Dates: start: 20140403, end: 20140429
  4. OLMETEC [Concomitant]
     Indication: HYPERTENSION
     Dosage: 20 MG, QD
     Route: 048
     Dates: start: 20131226
  5. TAKEPRON [Concomitant]
     Indication: GASTROOESOPHAGEAL REFLUX DISEASE
     Dosage: 15 MG, QD
     Route: 048
     Dates: start: 20140324, end: 20140429
  6. DEPAS [Concomitant]
     Indication: DEPRESSION
     Dosage: 0.5 MG, TID
     Route: 048
     Dates: start: 20140403, end: 20140429
  7. NORVASC [Concomitant]
     Indication: HYPERTENSION
     Dosage: 5 MG, QD
     Route: 048
     Dates: start: 20131226

REACTIONS (3)
  - Rhabdomyolysis [Recovering/Resolving]
  - Hyponatraemia [Recovering/Resolving]
  - Intentional product misuse [Unknown]
